FAERS Safety Report 22134079 (Version 2)
Quarter: 2023Q2

REPORT INFORMATION
  Report Type: Spontaneous
  Country: JP (occurrence: JP)
  Receive Date: 20230324
  Receipt Date: 20230525
  Transmission Date: 20230722
  Serious: Yes (Life-Threatening, Hospitalization, Other)
  Sender: FDA-Public Use
  Company Number: JP-COSETTE-CP2023JP000050

PATIENT
  Age: 69 Year
  Sex: Male

DRUGS (6)
  1. EFFIENT [Suspect]
     Active Substance: PRASUGREL HYDROCHLORIDE
     Indication: Chest pain
     Route: 048
     Dates: start: 20220721, end: 20220725
  2. ASPIRIN [Suspect]
     Active Substance: ASPIRIN
     Indication: Chest pain
     Route: 048
     Dates: start: 20220721, end: 20220725
  3. HEPARIN [Suspect]
     Active Substance: HEPARIN SODIUM
     Indication: Product used for unknown indication
     Dosage: 10000IU/DAY
     Route: 041
     Dates: start: 20220721, end: 20220725
  4. ROSUVASTATIN [Concomitant]
     Active Substance: ROSUVASTATIN
     Indication: Product used for unknown indication
     Route: 065
     Dates: start: 20220721
  5. ACETAMINOPHEN [Concomitant]
     Active Substance: ACETAMINOPHEN
     Indication: Product used for unknown indication
     Route: 065
     Dates: start: 20220721, end: 20220725
  6. ISOSORBIDE DINITRATE [Concomitant]
     Active Substance: ISOSORBIDE DINITRATE
     Indication: Product used for unknown indication
     Route: 065
     Dates: start: 20220721, end: 20220725

REACTIONS (7)
  - Arterial injury [Recovered/Resolved with Sequelae]
  - Gastrointestinal necrosis [Unknown]
  - Hepatic artery aneurysm [Unknown]
  - Acute kidney injury [Recovering/Resolving]
  - Pancreatic fistula [Recovering/Resolving]
  - Shock haemorrhagic [Unknown]
  - Intra-abdominal haemorrhage [Recovered/Resolved with Sequelae]

NARRATIVE: CASE EVENT DATE: 20220101
